FAERS Safety Report 9675972 (Version 3)
Quarter: 2014Q3

REPORT INFORMATION
  Report Type: Spontaneous
  Country: CA (occurrence: CA)
  Receive Date: 20131107
  Receipt Date: 20140701
  Transmission Date: 20150326
  Serious: Yes (Hospitalization)
  Sender: FDA-Public Use
  Company Number: CA-ROCHE-1300771

PATIENT
  Age: 16 Year
  Sex: Male

DRUGS (5)
  1. XOLAIR [Suspect]
     Active Substance: OMALIZUMAB
     Indication: ASTHMA
     Route: 058
     Dates: start: 20120223
  2. AVAMYS [Concomitant]
     Active Substance: FLUTICASONE FUROATE
  3. VENTOLIN [Concomitant]
     Active Substance: ALBUTEROL SULFATE
  4. ADVAIR HFA [Concomitant]
     Active Substance: FLUTICASONE PROPIONATE\SALMETEROL XINAFOATE
  5. QVAR [Concomitant]
     Active Substance: BECLOMETHASONE DIPROPIONATE

REACTIONS (5)
  - Incorrect drug administration duration [Unknown]
  - Adrenal insufficiency [Recovered/Resolved]
  - Incorrect dose administered [Unknown]
  - Influenza [Unknown]
  - Fear of injection [Unknown]

NARRATIVE: CASE EVENT DATE: 201402
